FAERS Safety Report 24528282 (Version 1)
Quarter: 2024Q4

REPORT INFORMATION
  Report Type: Spontaneous
  Country: KR (occurrence: KR)
  Receive Date: 20241021
  Receipt Date: 20241021
  Transmission Date: 20250115
  Serious: Yes (Hospitalization, Other)
  Sender: PFIZER
  Company Number: KR-PFIZER INC-PV202400135169

PATIENT
  Age: 8 Year
  Sex: Male

DRUGS (1)
  1. GENOTROPIN [Suspect]
     Active Substance: SOMATROPIN
     Indication: Growth hormone deficiency
     Dosage: 3 IU 6 TIMES A WEEK
     Dates: start: 202407, end: 20241013

REACTIONS (3)
  - Pyrexia [Unknown]
  - Pneumonia [Unknown]
  - Liver function test increased [Unknown]
